FAERS Safety Report 25604976 (Version 1)
Quarter: 2025Q3

REPORT INFORMATION
  Report Type: Report from Study
  Country: US (occurrence: US)
  Receive Date: 20250725
  Receipt Date: 20250725
  Transmission Date: 20251021
  Serious: No
  Sender: SUNOVION
  Company Number: US-SMPA-2025SPA009111AA

PATIENT

DRUGS (3)
  1. ORGOVYX [Suspect]
     Active Substance: RELUGOLIX
     Indication: Prostate cancer
     Route: 048
  2. ORGOVYX [Suspect]
     Active Substance: RELUGOLIX
     Route: 048
     Dates: start: 20250603
  3. ZYTIGA [Suspect]
     Active Substance: ABIRATERONE ACETATE
     Indication: Product used for unknown indication
     Route: 065
     Dates: end: 20250710

REACTIONS (7)
  - Tooth infection [Unknown]
  - Bradycardia [Recovered/Resolved]
  - Hepatic enzyme increased [Unknown]
  - Irritability [Unknown]
  - Crying [Unknown]
  - Fatigue [Unknown]
  - Hot flush [Unknown]
